FAERS Safety Report 16139332 (Version 1)
Quarter: 2019Q2

REPORT INFORMATION
  Report Type: Spontaneous
  Country: DE (occurrence: DE)
  Receive Date: 20190401
  Receipt Date: 20190401
  Transmission Date: 20190711
  Serious: No
  Sender: FDA-Public Use
  Company Number: DE-ROCHE-2269962

PATIENT
  Age: 52 Year
  Sex: Female

DRUGS (5)
  1. IBUPROFEN. [Concomitant]
     Active Substance: IBUPROFEN
     Indication: PAIN
     Route: 048
  2. TILIDIN [Concomitant]
     Active Substance: NALOXONE HYDROCHLORIDE\TILIDINE HYDROCHLORIDE
     Indication: PAIN
     Dosage: 50/4
     Route: 048
  3. OCREVUS [Suspect]
     Active Substance: OCRELIZUMAB
     Indication: MULTIPLE SCLEROSIS
     Route: 042
  4. SATIVEX [Concomitant]
     Active Substance: NABIXIMOLS
     Route: 048
  5. DEKRISTOL [Concomitant]
     Active Substance: CHOLECALCIFEROL
     Indication: VITAMIN D DEFICIENCY
     Route: 048

REACTIONS (3)
  - Lymphopenia [Recovered/Resolved]
  - Febrile infection [Unknown]
  - Leukopenia [Recovered/Resolved]

NARRATIVE: CASE EVENT DATE: 201808
